FAERS Safety Report 16741100 (Version 1)
Quarter: 2019Q4

REPORT INFORMATION
  Report Type: Spontaneous
  Country: US (occurrence: US)
  Receive Date: 20190826
  Receipt Date: 20190826
  Transmission Date: 20200122
  Serious: Yes (Disabling)
  Sender: FDA-Public Use
  Company Number: None

PATIENT
  Age: 28 Year
  Sex: Male
  Weight: 81 kg

DRUGS (2)
  1. FINASTERIDE. [Suspect]
     Active Substance: FINASTERIDE
     Indication: ALOPECIA
     Dates: start: 20181121, end: 20190107
  2. CITALOPRAM [Concomitant]
     Active Substance: CITALOPRAM HYDROBROMIDE

REACTIONS (8)
  - Depression [None]
  - Insomnia [None]
  - Dizziness [None]
  - Erectile dysfunction [None]
  - Mood altered [None]
  - Panic attack [None]
  - Tunnel vision [None]
  - Anxiety [None]

NARRATIVE: CASE EVENT DATE: 20190123
